FAERS Safety Report 14830110 (Version 1)
Quarter: 2018Q2

REPORT INFORMATION
  Report Type: Spontaneous
  Country: US (occurrence: US)
  Receive Date: 20180430
  Receipt Date: 20180430
  Transmission Date: 20180711
  Serious: Yes (Hospitalization)
  Sender: FDA-Public Use
  Company Number: US-VIFOR (INTERNATIONAL) INC.-VIT-2018-03934

PATIENT
  Age: 74 Year
  Sex: Male

DRUGS (24)
  1. ATORVASTATIN CALCIUM. [Concomitant]
     Active Substance: ATORVASTATIN CALCIUM
  2. CLOPIDOGREL BISULFATE. [Concomitant]
     Active Substance: CLOPIDOGREL BISULFATE
  3. PROAIR HFA [Concomitant]
     Active Substance: ALBUTEROL SULFATE
  4. SENSIPAR [Concomitant]
     Active Substance: CINACALCET HYDROCHLORIDE
  5. AMARYL [Concomitant]
     Active Substance: GLIMEPIRIDE
  6. ACETYLSALICYLIC ACID [Concomitant]
     Active Substance: ASPIRIN
  7. CEFALEXIN [Concomitant]
     Active Substance: CEPHALEXIN
  8. DICYCLOVERINE HYDROCHLORIDE [Concomitant]
     Active Substance: DICYCLOMINE HYDROCHLORIDE
  9. NITROSTAT [Concomitant]
     Active Substance: NITROGLYCERIN
  10. SEREVENT DISKUS [Concomitant]
     Active Substance: SALMETEROL XINAFOATE
  11. CARVEDILOL. [Concomitant]
     Active Substance: CARVEDILOL
  12. TOCOPHEROL~~FISH OIL [Concomitant]
  13. MAGNESIUM HYDROXIDE. [Concomitant]
     Active Substance: MAGNESIUM HYDROXIDE
  14. RENVELA [Concomitant]
     Active Substance: SEVELAMER CARBONATE
  15. VELTASSA [Suspect]
     Active Substance: PATIROMER
     Route: 048
     Dates: start: 20180420
  16. ASMANEX [Concomitant]
     Active Substance: MOMETASONE FUROATE
     Dosage: 30 METERED DOSES
  17. LANTUS [Concomitant]
     Active Substance: INSULIN GLARGINE
  18. METAMUCIL SMOOTH TEXTURE [Concomitant]
  19. GLUCAGON. [Concomitant]
     Active Substance: GLUCAGON
  20. HUMULIN R [Concomitant]
     Active Substance: INSULIN HUMAN
  21. VELTASSA [Suspect]
     Active Substance: PATIROMER
     Indication: HYPERKALAEMIA
     Route: 048
     Dates: start: 20160513, end: 20180420
  22. BUMETANIDE. [Concomitant]
     Active Substance: BUMETANIDE
  23. NEXIUM [Concomitant]
     Active Substance: ESOMEPRAZOLE MAGNESIUM
  24. TRAMADOL HYDROCHLORIDE. [Concomitant]
     Active Substance: TRAMADOL HYDROCHLORIDE

REACTIONS (1)
  - Surgery [Unknown]

NARRATIVE: CASE EVENT DATE: 20180420
